FAERS Safety Report 6531930-2 (Version None)
Quarter: 2010Q1

REPORT INFORMATION
  Report Type: 
  Country: None (occurrence: None)
  Receive Date: 20100107
  Receipt Date: 20100107
  Transmission Date: 20100710
  Serious: Yes (Disabling, Other)
  Sender: FDA-Public Use
  Company Number: None

PATIENT
  Sex: Female
  Weight: 124.7392 kg

DRUGS (3)
  1. ANDROGEL [Suspect]
     Indication: BLOOD TESTOSTERONE DECREASED
     Dosage: 5 PUMPS APPLIED TO SKIN DAILY
  2. ANDROGEL [Suspect]
     Indication: ERECTILE DYSFUNCTION
     Dosage: 5 PUMPS APPLIED TO SKIN DAILY
  3. ANDROGEL [Concomitant]

REACTIONS (4)
  - ACCIDENTAL EXPOSURE [None]
  - DIHYDROTESTOSTERONE INCREASED [None]
  - HAIR GROWTH ABNORMAL [None]
  - OEDEMA GENITAL [None]
